FAERS Safety Report 6204594-5 (Version None)
Quarter: 2009Q2

REPORT INFORMATION
  Report Type: 
  Country: None (occurrence: None)
  Receive Date: 20090527
  Receipt Date: 20090515
  Transmission Date: 20091009
  Serious: Yes (Other)
  Sender: FDA-Public Use
  Company Number: GB-SANOFI-SYNTHELABO-F01200900486

PATIENT
  Age: 65 Year
  Sex: Female

DRUGS (3)
  1. CETUXIMAB [Suspect]
     Route: 041
     Dates: start: 20080721, end: 20080721
  2. FLUOROURACIL [Suspect]
     Dosage: 650 MG BOLUS, 3900 MG INFUSION
     Route: 041
     Dates: start: 20080721, end: 20080721
  3. OXALIPLATIN [Suspect]
     Indication: COLORECTAL CANCER METASTATIC
     Dosage: UNK
     Route: 041
     Dates: start: 20080721, end: 20080721

REACTIONS (1)
  - TREMOR [None]
